FAERS Safety Report 9539420 (Version 2)
Quarter: 2013Q3

REPORT INFORMATION
  Report Type: Spontaneous
  Country: US (occurrence: US)
  Receive Date: 20130920
  Receipt Date: 20130920
  Transmission Date: 20140515
  Serious: No
  Sender: FDA-Public Use
  Company Number: US-PURDUE-USA-2011-0075280

PATIENT
  Age: 59 Year
  Sex: Female

DRUGS (5)
  1. BUTRANS [Suspect]
     Indication: NEUROPATHY PERIPHERAL
     Dosage: 20 MCG/HR, Q1H
     Route: 062
     Dates: start: 20110720, end: 20111005
  2. BUTRANS [Suspect]
     Indication: PAIN
  3. CELEBREX [Concomitant]
     Indication: PRODUCT USED FOR UNKNOWN INDICATION
  4. HUMIRA [Concomitant]
     Indication: PRODUCT USED FOR UNKNOWN INDICATION
  5. LYRICA [Concomitant]
     Indication: PRODUCT USED FOR UNKNOWN INDICATION

REACTIONS (6)
  - Type IV hypersensitivity reaction [Not Recovered/Not Resolved]
  - Application site discharge [Not Recovered/Not Resolved]
  - Dermatitis allergic [Not Recovered/Not Resolved]
  - Application site erythema [Unknown]
  - Application site vesicles [Not Recovered/Not Resolved]
  - Product adhesion issue [Unknown]
